FAERS Safety Report 11010406 (Version 1)
Quarter: 2015Q2

REPORT INFORMATION
  Report Type: Spontaneous
  Country: US (occurrence: US)
  Receive Date: 20150410
  Receipt Date: 20150410
  Transmission Date: 20150821
  Serious: Yes (Hospitalization, Other)
  Sender: FDA-Public Use
  Company Number: US-GLAXOSMITHKLINE-US2015GSK045677

PATIENT
  Age: 18 Year
  Sex: Female

DRUGS (3)
  1. LAMOTRIGINE. [Suspect]
     Active Substance: LAMOTRIGINE
     Indication: PRODUCT USED FOR UNKNOWN INDICATION
     Dosage: UNK
  2. MELATONIN [Suspect]
     Active Substance: MELATONIN
     Indication: PRODUCT USED FOR UNKNOWN INDICATION
     Dosage: UNK
  3. VENLAFAXINE [Suspect]
     Active Substance: VENLAFAXINE HYDROCHLORIDE
     Indication: PRODUCT USED FOR UNKNOWN INDICATION
     Dosage: 150 MG, UNK, 22 CAPSULES
     Route: 048

REACTIONS (13)
  - Mydriasis [Unknown]
  - Seizure [Recovered/Resolved]
  - Suicide attempt [Unknown]
  - Feeling jittery [Unknown]
  - Nystagmus [Unknown]
  - Sinus tachycardia [Recovered/Resolved]
  - Overdose [Unknown]
  - Dizziness [Unknown]
  - Tremor [Unknown]
  - Sluggishness [Unknown]
  - Feeling hot [Unknown]
  - Nausea [Unknown]
  - Drug screen positive [Unknown]
